FAERS Safety Report 7998225-1 (Version None)
Quarter: 2011Q4

REPORT INFORMATION
  Report Type: 
  Country: None (occurrence: None)
  Receive Date: 20111221
  Receipt Date: 20110426
  Transmission Date: 20120403
  Serious: No
  Sender: FDA-Public Use
  Company Number: US-GLAXOSMITHKLINE-A0924593A

PATIENT
  Age: 49 Year
  Sex: Female

DRUGS (8)
  1. LOVAZA [Suspect]
     Indication: BLOOD TRIGLYCERIDES INCREASED
     Dosage: 4G PER DAY
     Route: 048
     Dates: start: 20101001, end: 20110405
  2. BENADRYL [Concomitant]
  3. IBUPROFEN (ADVIL) [Concomitant]
  4. ACETAMINOPHEN [Concomitant]
  5. CLARITIN [Concomitant]
  6. CALCIUM + D [Concomitant]
  7. AZELNIDIPINE [Concomitant]
  8. ZOLPIDEM [Concomitant]

REACTIONS (1)
  - WEIGHT INCREASED [None]
